FAERS Safety Report 17567216 (Version 2)
Quarter: 2021Q2

REPORT INFORMATION
  Report Type: Spontaneous
  Country: CA (occurrence: CA)
  Receive Date: 20200320
  Receipt Date: 20210521
  Transmission Date: 20210716
  Serious: Yes (Other)
  Sender: FDA-Public Use
  Company Number: CA-SHIRE-CA202009457

PATIENT
  Age: 28 Year
  Sex: Male

DRUGS (10)
  1. C1 INHIBITOR (HUMAN) [Suspect]
     Active Substance: HUMAN C1-ESTERASE INHIBITOR
     Indication: HEREDITARY ANGIOEDEMA WITH C1 ESTERASE INHIBITOR DEFICIENCY
     Dosage: 4500 INTERNATIONAL UNIT
     Route: 058
  2. C1 INHIBITOR (HUMAN) [Suspect]
     Active Substance: HUMAN C1-ESTERASE INHIBITOR
     Indication: HEREDITARY ANGIOEDEMA WITH C1 ESTERASE INHIBITOR DEFICIENCY
     Dosage: 4500 INTERNATIONAL UNIT
     Route: 058
  3. C1 INHIBITOR (HUMAN) [Suspect]
     Active Substance: HUMAN C1-ESTERASE INHIBITOR
     Dosage: 6000 INTERNATIONAL UNIT, 2/WEEK
     Route: 058
     Dates: start: 20191026, end: 20191026
  4. C1 INHIBITOR (HUMAN) [Suspect]
     Active Substance: HUMAN C1-ESTERASE INHIBITOR
     Indication: PROPHYLAXIS
     Dosage: 6000 INTERNATIONAL UNIT, 2X A WEEK
     Route: 058
  5. C1 INHIBITOR (HUMAN) [Suspect]
     Active Substance: HUMAN C1-ESTERASE INHIBITOR
     Indication: PROPHYLAXIS
     Dosage: 6000 INTERNATIONAL UNIT, 2X A WEEK
     Route: 058
  6. DANAZOL. [Concomitant]
     Active Substance: DANAZOL
     Indication: PRODUCT USED FOR UNKNOWN INDICATION
     Dosage: 400 MILLIGRAM, PRN
     Route: 065
  7. C1 INHIBITOR (HUMAN) [Suspect]
     Active Substance: HUMAN C1-ESTERASE INHIBITOR
     Dosage: 6000 INTERNATIONAL UNIT, 2/WEEK
     Route: 058
     Dates: start: 20191026, end: 20191026
  8. C1 INHIBITOR (HUMAN) [Suspect]
     Active Substance: HUMAN C1-ESTERASE INHIBITOR
     Indication: PROPHYLAXIS
     Dosage: 6000 INTERNATIONAL UNIT, 2X A WEEK
     Route: 058
  9. C1 INHIBITOR (HUMAN) [Suspect]
     Active Substance: HUMAN C1-ESTERASE INHIBITOR
     Indication: HEREDITARY ANGIOEDEMA WITH C1 ESTERASE INHIBITOR DEFICIENCY
     Dosage: 4500 INTERNATIONAL UNIT
     Route: 058
  10. C1 INHIBITOR (HUMAN) [Suspect]
     Active Substance: HUMAN C1-ESTERASE INHIBITOR
     Dosage: 6000 INTERNATIONAL UNIT, 2/WEEK
     Route: 058
     Dates: start: 20191026, end: 20191026

REACTIONS (10)
  - Syncope [Recovered/Resolved]
  - Product use in unapproved indication [Recovered/Resolved]
  - Presyncope [Recovered/Resolved]
  - Injection site haemorrhage [Recovered/Resolved]
  - Incorrect dose administered [Recovered/Resolved]
  - Anxiety [Recovered/Resolved]
  - Incorrect route of product administration [Recovered/Resolved]
  - Hyperhidrosis [Recovered/Resolved]
  - Cold sweat [Recovered/Resolved]
  - Feeling abnormal [Recovered/Resolved]
